FAERS Safety Report 5723100-2 (Version None)
Quarter: 2008Q2

REPORT INFORMATION
  Report Type: 
  Country: None (occurrence: None)
  Receive Date: 20080430
  Receipt Date: 20080418
  Transmission Date: 20081010
  Serious: Yes (Hospitalization, Other)
  Sender: FDA-Public Use
  Company Number: CH-ELI_LILLY_AND_COMPANY-CH200804004849

PATIENT
  Age: 49 Year
  Sex: Male
  Weight: 97 kg

DRUGS (4)
  1. ALIMTA [Suspect]
     Indication: NON-SMALL CELL LUNG CANCER
     Dosage: 1000 MG, UNK
     Route: 042
     Dates: start: 20080311
  2. MS CONTIN [Concomitant]
     Indication: PAIN
     Dosage: 120 MG, DAILY (1/D)
     Route: 048
     Dates: start: 20080101
  3. DAFALGAN [Concomitant]
     Indication: PAIN
     Dosage: 4 G, DAILY (1/D)
     Route: 048
     Dates: start: 20080101
  4. NOVALGIN [Concomitant]
     Indication: PAIN
     Dosage: 4 G, DAILY (1/D)
     Route: 048
     Dates: start: 20080101

REACTIONS (1)
  - GASTRIC HAEMORRHAGE [None]
